FAERS Safety Report 7226751-1 (Version None)
Quarter: 2011Q1

REPORT INFORMATION
  Report Type: 
  Country: None (occurrence: None)
  Receive Date: 20110105
  Receipt Date: 20101224
  Transmission Date: 20110831
  Serious: Yes (Hospitalization)
  Sender: FDA-Public Use
  Company Number: 788785

PATIENT
  Age: 75 Year
  Sex: Female
  Weight: 55 kg

DRUGS (21)
  1. EZETIMIBE [Concomitant]
  2. (PARAFFIN, LIQUID) [Concomitant]
  3. (STRONTIUM RANELATE) [Concomitant]
  4. BETNOVATE [Concomitant]
  5. (HYDROCORTISTAB) [Concomitant]
  6. (WHITE SOFT PARAFFIN) [Concomitant]
  7. (ALENDRONIC ACID) [Concomitant]
  8. AUGMENTIN '125' [Concomitant]
  9. (DERMOL /01330701/) [Concomitant]
  10. OMEPRAZOLE [Concomitant]
  11. (FERROUS SULPHATE /00023503/) [Concomitant]
  12. (VANCOMYCIN) [Concomitant]
  13. (BEXAROTENE) [Suspect]
     Indication: MYCOSIS FUNGOIDES
     Dosage: ORAL; 300 MG MILLIGRAM(S) ORAL; 225 MG MILLIGRAM(S) ORAL
     Route: 048
     Dates: start: 20101013, end: 20101105
  14. (BEXAROTENE) [Suspect]
     Indication: MYCOSIS FUNGOIDES
     Dosage: ORAL; 300 MG MILLIGRAM(S) ORAL; 225 MG MILLIGRAM(S) ORAL
     Route: 048
     Dates: start: 20101106
  15. (EUMOVATE) [Concomitant]
  16. (FOLIC ACID) [Concomitant]
  17. GENTAMICIN [Concomitant]
  18. (TIMOLOL) [Concomitant]
  19. AMIKACIN [Suspect]
     Indication: URINARY TRACT INFECTION
     Dosage: 750 MG MILLIGRAM(S), INTRAVENOUS
     Route: 042
     Dates: start: 20101129, end: 20101203
  20. LEVOTHYROXINE SODIUM [Concomitant]
  21. ROSUVASTATIN [Concomitant]

REACTIONS (6)
  - HIP ARTHROPLASTY [None]
  - DEVICE RELATED INFECTION [None]
  - NEUTROPENIA [None]
  - URINARY TRACT INFECTION [None]
  - PNEUMONIA [None]
  - CLOSTRIDIUM DIFFICILE COLITIS [None]
